FAERS Safety Report 6914528-3 (Version None)
Quarter: 2010Q3

REPORT INFORMATION
  Report Type: 
  Country: None (occurrence: None)
  Receive Date: 20100805
  Receipt Date: 20100805
  Transmission Date: 20110219
  Serious: Yes (Life-Threatening)
  Sender: FDA-Public Use
  Company Number: None

PATIENT
  Age: 75 Year
  Sex: Female
  Weight: 80 kg

DRUGS (10)
  1. ACTIVASE [Suspect]
     Indication: CEREBROVASCULAR ACCIDENT
     Dosage: 100 MG OT IV
     Route: 042
     Dates: start: 20100801
  2. MULTIVITAMIN [Concomitant]
  3. GLYBURIDE [Concomitant]
  4. SOMA [Concomitant]
  5. ALLEGRA [Concomitant]
  6. ASPIRIN [Concomitant]
  7. LOPRESSOR [Concomitant]
  8. LOVASTATIN [Concomitant]
  9. ALPHAGAN [Concomitant]
  10. LISINOPRIL [Concomitant]

REACTIONS (4)
  - LIP SWELLING [None]
  - OBSTRUCTIVE AIRWAYS DISORDER [None]
  - SWELLING FACE [None]
  - SWOLLEN TONGUE [None]
